FAERS Safety Report 17352537 (Version 3)
Quarter: 2020Q1

REPORT INFORMATION
  Report Type: Spontaneous
  Country: JP (occurrence: JP)
  Receive Date: 20200131
  Receipt Date: 20200226
  Transmission Date: 20200409
  Serious: Yes (Other)
  Sender: FDA-Public Use
  Company Number: JP-ROCHE-2538007

PATIENT
  Age: 40 Year
  Sex: Male

DRUGS (1)
  1. HEMLIBRA [Suspect]
     Active Substance: EMICIZUMAB-KXWH
     Indication: HAEMOPHILIA A WITHOUT INHIBITORS
     Route: 058
     Dates: start: 20190304

REACTIONS (2)
  - Activated partial thromboplastin time prolonged [Unknown]
  - Haemarthrosis [Unknown]

NARRATIVE: CASE EVENT DATE: 20200121
